FAERS Safety Report 5014179-4 (Version None)
Quarter: 2006Q2

REPORT INFORMATION
  Report Type: 
  Country: None (occurrence: None)
  Receive Date: 20060414
  Receipt Date: 20060109
  Transmission Date: 20061013
  Serious: No
  Sender: FDA-Public Use
  Company Number: 2006SP000124

PATIENT
  Age: 59 Year
  Sex: Male
  Weight: 108.8633 kg

DRUGS (8)
  1. LUNESTA [Suspect]
     Indication: INSOMNIA
     Dosage: 3 MG;HS;ORAL   2 MG;HS;ORAL
     Route: 048
     Dates: start: 20050601, end: 20050701
  2. LUNESTA [Suspect]
     Indication: INSOMNIA
     Dosage: 3 MG;HS;ORAL   2 MG;HS;ORAL
     Route: 048
     Dates: start: 20050701
  3. LODINE [Concomitant]
  4. FLOMAX [Concomitant]
  5. WELLBUTRIN [Concomitant]
  6. SKELAXIN [Concomitant]
  7. TRAZODONE HCL [Concomitant]
  8. VERALIPRIL [Concomitant]

REACTIONS (3)
  - DRUG INEFFECTIVE [None]
  - DYSGEUSIA [None]
  - INSOMNIA [None]
